FAERS Safety Report 9586898 (Version 3)
Quarter: 2013Q4

REPORT INFORMATION
  Report Type: Spontaneous
  Country: IT (occurrence: IT)
  Receive Date: 20131003
  Receipt Date: 20131203
  Transmission Date: 20140711
  Serious: Yes (Other)
  Sender: FDA-Public Use
  Company Number: IT-UCBSA-098829

PATIENT
  Age: 39 Year
  Sex: Female

DRUGS (4)
  1. KEPPRA [Suspect]
     Indication: EPILEPSY
     Dosage: 500 MG,60 TABLETS
     Dates: start: 20130101
  2. STILNOX [Suspect]
     Dosage: 10 MG ,30 TABLETS
     Dates: start: 20130701
  3. GARDENALE [Suspect]
     Dosage: 50 MG
     Dates: start: 20130101
  4. TEGRETOL [Suspect]
     Dosage: 400 MG
     Dates: start: 20130101

REACTIONS (1)
  - Loss of consciousness [Recovered/Resolved]
